FAERS Safety Report 25720821 (Version 3)
Quarter: 2025Q3

REPORT INFORMATION
  Report Type: Report from Study
  Country: US (occurrence: US)
  Receive Date: 20250825
  Receipt Date: 20250926
  Transmission Date: 20251020
  Serious: No
  Sender: SUNOVION
  Company Number: US-SUMITOMO PHARMA SWITZERLAND GMBH-2025SPA010367

PATIENT
  Age: 64 Year
  Sex: Male

DRUGS (10)
  1. ORGOVYX [Suspect]
     Active Substance: RELUGOLIX
     Indication: Prostate cancer
     Route: 048
     Dates: start: 20250812, end: 20250812
  2. ORGOVYX [Suspect]
     Active Substance: RELUGOLIX
     Route: 048
  3. ATORVASTATIN [Suspect]
     Active Substance: ATORVASTATIN
     Indication: Product used for unknown indication
  4. ABIRATERONE [Concomitant]
     Active Substance: ABIRATERONE
  5. ADVIL [Concomitant]
     Active Substance: IBUPROFEN
  6. PREDNISONE [Concomitant]
     Active Substance: PREDNISONE
  7. TAMSULOSIN [Concomitant]
     Active Substance: TAMSULOSIN
  8. VITAMINS [Concomitant]
     Active Substance: VITAMINS
  9. CALCIUM [Concomitant]
     Active Substance: CALCIUM
  10. CALCIUM\VITAMIN D [Concomitant]
     Active Substance: CALCIUM\VITAMIN D

REACTIONS (5)
  - Nocturia [Unknown]
  - Hepatic enzyme increased [Unknown]
  - Dizziness [Recovering/Resolving]
  - Hot flush [Recovering/Resolving]
  - Fatigue [Unknown]
